FAERS Safety Report 9204585 (Version 1)
Quarter: 2013Q2

REPORT INFORMATION
  Report Type: Spontaneous
  Country: US (occurrence: US)
  Receive Date: 20130402
  Receipt Date: 20130402
  Transmission Date: 20140414
  Serious: No
  Sender: FDA-Public Use
  Company Number: US-PFIZER INC-2013101324

PATIENT
  Age: 82 Year
  Sex: Female
  Weight: 63.49 kg

DRUGS (1)
  1. VIAGRA [Suspect]
     Dosage: UNK, 3X/DAY

REACTIONS (3)
  - Off label use [Unknown]
  - Alopecia [Not Recovered/Not Resolved]
  - Rash macular [Not Recovered/Not Resolved]
